FAERS Safety Report 6902153-X (Version None)
Quarter: 2010Q3

REPORT INFORMATION
  Report Type: 
  Country: None (occurrence: None)
  Receive Date: 20100803
  Receipt Date: 20100719
  Transmission Date: 20110219
  Serious: Yes (Other)
  Sender: FDA-Public Use
  Company Number: CA-MERCK-1007USA03515

PATIENT
  Age: 58 Year
  Sex: Female

DRUGS (4)
  1. SINEMET [Suspect]
     Indication: PARKINSON'S DISEASE
     Route: 048
     Dates: start: 20060101
  2. PRAMIPEXOLE DIHYDROCHLORIDE [Suspect]
     Indication: PARKINSON'S DISEASE
     Route: 065
     Dates: start: 20050101
  3. LEVODOPA [Suspect]
     Indication: PARKINSON'S DISEASE
     Route: 065
  4. RASAGILINE MESYLATE [Suspect]
     Indication: PARKINSON'S DISEASE
     Route: 065
     Dates: start: 20080101

REACTIONS (4)
  - COMPULSIVE SHOPPING [None]
  - DERMATILLOMANIA [None]
  - KLEPTOMANIA [None]
  - SKIN LESION [None]
